FAERS Safety Report 6564844-2 (Version None)
Quarter: 2010Q1

REPORT INFORMATION
  Report Type: 
  Country: None (occurrence: None)
  Receive Date: 20100201
  Receipt Date: 20100120
  Transmission Date: 20100710
  Serious: Yes (Death, Other)
  Sender: FDA-Public Use
  Company Number: JP-PFIZER INC-2010009422

PATIENT
  Age: 54 Year
  Sex: Male
  Weight: 50.4 kg

DRUGS (1)
  1. LINEZOLID [Suspect]
     Indication: PNEUMONIA
     Dosage: 1200 MG, 1X/DAY
     Route: 042

REACTIONS (2)
  - ANTIMICROBIAL SUSCEPTIBILITY TEST RESISTANT [None]
  - CARDIO-RESPIRATORY ARREST [None]
